FAERS Safety Report 4786964-5 (Version None)
Quarter: 2005Q3

REPORT INFORMATION
  Report Type: 
  Country: None (occurrence: None)
  Receive Date: 20050930
  Receipt Date: 20050204
  Transmission Date: 20060218
  Serious: Yes (Hospitalization)
  Sender: FDA-Public Use
  Company Number: 2005FR-00301

PATIENT
  Age: 56 Year
  Sex: Female

DRUGS (1)
  1. ASPIRIN [Suspect]
     Indication: HEADACHE
     Dosage: PRN, ORAL
     Route: 048

REACTIONS (2)
  - HAEMATEMESIS [None]
  - MELAENA [None]
